FAERS Safety Report 14891516 (Version 1)
Quarter: 2018Q2

REPORT INFORMATION
  Report Type: Spontaneous
  Country: US (occurrence: US)
  Receive Date: 20180514
  Receipt Date: 20180514
  Transmission Date: 20180711
  Serious: No
  Sender: FDA-Public Use
  Company Number: US-UNITED THERAPEUTICS-UNT-2018-000491

PATIENT
  Sex: Female
  Weight: 63.49 kg

DRUGS (4)
  1. REMODULIN [Suspect]
     Active Substance: TREPROSTINIL
     Indication: PULMONARY ARTERIAL HYPERTENSION
     Dosage: 0.0575 ?G/KG, CONTINUING
     Route: 058
  2. LETAIRIS [Concomitant]
     Active Substance: AMBRISENTAN
     Indication: PRODUCT USED FOR UNKNOWN INDICATION
     Route: 065
  3. REMODULIN [Suspect]
     Active Substance: TREPROSTINIL
     Dosage: 0.056 ?G/KG, CONTINUING
     Route: 058
     Dates: start: 20170629
  4. REMODULIN [Suspect]
     Active Substance: TREPROSTINIL
     Indication: PULMONARY HYPERTENSION
     Dosage: 0.05 ?G/KG, CONTINUING
     Route: 058
     Dates: start: 20170629

REACTIONS (11)
  - Infusion site discomfort [Unknown]
  - Infusion site discharge [Unknown]
  - Fluid retention [Unknown]
  - Infusion site pain [Unknown]
  - Infusion site swelling [Unknown]
  - Infusion site discolouration [Unknown]
  - Malaise [Unknown]
  - Oxygen consumption increased [Unknown]
  - Infusion site erythema [Unknown]
  - Rash [Unknown]
  - Infusion site infection [Unknown]
